FAERS Safety Report 5914293-2 (Version None)
Quarter: 2008Q4

REPORT INFORMATION
  Report Type: 
  Country: None (occurrence: None)
  Receive Date: 20081009
  Receipt Date: 20081006
  Transmission Date: 20090506
  Serious: No
  Sender: FDA-Public Use
  Company Number: US-B.I. PHARMACEUTICALS,INC./RIDGEFIELD-2008-BP-14115BP

PATIENT
  Age: 52 Year
  Sex: Female

DRUGS (7)
  1. SPIRIVA [Suspect]
     Indication: CHRONIC OBSTRUCTIVE PULMONARY DISEASE
     Route: 055
  2. PRIMIDONE [Concomitant]
  3. ACETAZOLAMIDE [Concomitant]
  4. KEPPRA [Concomitant]
  5. FORADIL [Concomitant]
  6. COUMADIN [Concomitant]
  7. AMPHETAMINE AND DEXTROAMPHETAMINE SALTS [Concomitant]

REACTIONS (1)
  - DRUG INEFFECTIVE [None]
